FAERS Safety Report 7494308-3 (Version None)
Quarter: 2011Q2

REPORT INFORMATION
  Report Type: 
  Country: None (occurrence: None)
  Receive Date: 20110520
  Receipt Date: 20110517
  Transmission Date: 20111010
  Serious: Yes (Death)
  Sender: FDA-Public Use
  Company Number: PHHY2011GB41725

PATIENT
  Age: 67 Year
  Sex: Female

DRUGS (7)
  1. SIMVASTATIN [Concomitant]
  2. MICONAZOLE [Concomitant]
  3. DIAZEPAM [Concomitant]
  4. PROCHLORPERAZINE TAB [Concomitant]
  5. SEROQUEL [Suspect]
     Indication: DEPRESSION
     Dosage: 300 MG, QD
     Route: 048
     Dates: start: 20110101
  6. SERTRALINE HYDROCHLORIDE [Suspect]
     Indication: DEPRESSION
     Dosage: 100 MG, QD
     Route: 048
     Dates: start: 20110101
  7. LANSOPRAZOLE [Concomitant]

REACTIONS (3)
  - OVERDOSE [None]
  - FEELING COLD [None]
  - COMPLETED SUICIDE [None]
